FAERS Safety Report 4948675-2 (Version None)
Quarter: 2006Q1

REPORT INFORMATION
  Report Type: 
  Country: None (occurrence: None)
  Receive Date: 20060207
  Receipt Date: 20050720
  Transmission Date: 20060701
  Serious: No
  Sender: FDA-Public Use
  Company Number: 245576

PATIENT
  Age: 30 Year
  Sex: Female
  Weight: 59.9 kg

DRUGS (2)
  1. NOVOLOG [Suspect]
     Indication: DIABETES MELLITUS INSULIN-DEPENDENT
     Dosage: SUBCUTAN.-PUMP
     Route: 058
     Dates: start: 20050704, end: 20050708
  2. MINIMED PARADIGM INSULIN PUMP [Concomitant]

REACTIONS (1)
  - URTICARIA [None]
